FAERS Safety Report 10592390 (Version 2)
Quarter: 2014Q4

REPORT INFORMATION
  Report Type: Spontaneous
  Country: US (occurrence: None)
  Receive Date: 20141117
  Receipt Date: 20141209
  Transmission Date: 20150529
  Serious: Yes (Hospitalization, Other)
  Sender: FDA-Public Use
  Company Number: 2014-US-014933

PATIENT
  Sex: Male

DRUGS (1)
  1. XYREM [Suspect]
     Active Substance: SODIUM OXYBATE
     Indication: NARCOLEPSY
     Route: 048
     Dates: start: 201210, end: 2012

REACTIONS (4)
  - Hospitalisation [None]
  - Fall [None]
  - Alcohol abuse [None]
  - Cardiac disorder [None]

NARRATIVE: CASE EVENT DATE: 2014
